FAERS Safety Report 9655555 (Version 1)
Quarter: 2013Q4

REPORT INFORMATION
  Report Type: Spontaneous
  Country: US (occurrence: US)
  Receive Date: 20131029
  Receipt Date: 20131029
  Transmission Date: 20140711
  Serious: No
  Sender: FDA-Public Use
  Company Number: US-009507513-1310USA008139

PATIENT
  Age: 28 Year
  Sex: Female

DRUGS (1)
  1. EMEND [Suspect]
     Indication: NEOPLASM MALIGNANT
     Dosage: 150 MICROGRAM, UNK
     Route: 042
     Dates: start: 20131011, end: 201310

REACTIONS (4)
  - Back pain [Recovered/Resolved]
  - Chest discomfort [Recovered/Resolved]
  - Erythema [Recovered/Resolved]
  - Dyspnoea [Recovered/Resolved]
